FAERS Safety Report 12928256 (Version 1)
Quarter: 2016Q4

REPORT INFORMATION
  Report Type: Spontaneous
  Country: US (occurrence: US)
  Receive Date: 20161110
  Receipt Date: 20161110
  Transmission Date: 20170207
  Serious: Yes (Other)
  Sender: FDA-Public Use
  Company Number: US-OCTA-WIL00516US

PATIENT
  Age: 8 Year
  Sex: Female

DRUGS (1)
  1. WILATE [Suspect]
     Active Substance: HUMAN COAGULATION FACTOR VIII/VON WILLEBRAND FACTOR COMPLEX
     Indication: EPISTAXIS
     Dosage: EVERY 8-12 HOURS, AS NEEDED
     Route: 042
     Dates: start: 20160216

REACTIONS (1)
  - Epistaxis [Unknown]
